FAERS Safety Report 5363200-2 (Version None)
Quarter: 2007Q2

REPORT INFORMATION
  Report Type: 
  Country: None (occurrence: None)
  Receive Date: 20070620
  Receipt Date: 20070612
  Transmission Date: 20071010
  Serious: Yes (Other)
  Sender: FDA-Public Use
  Company Number: PHBS2007BR10038

PATIENT
  Age: 1 Year
  Sex: Male
  Weight: 9 kg

DRUGS (2)
  1. TEGRETOL [Suspect]
     Indication: FEBRILE CONVULSION
     Dosage: 3 ML, BID
     Route: 048
  2. TEGRETOL [Suspect]
     Dosage: 2.5 ML, QD
     Route: 048

REACTIONS (8)
  - AGITATION [None]
  - HYPOKINESIA [None]
  - INFLUENZA [None]
  - MASS [None]
  - MUSCLE RIGIDITY [None]
  - PARALYSIS [None]
  - PHARYNGITIS [None]
  - TREMOR [None]
